FAERS Safety Report 19317142 (Version 1)
Quarter: 2021Q2

REPORT INFORMATION
  Report Type: Spontaneous
  Country: US (occurrence: US)
  Receive Date: 20210527
  Receipt Date: 20210527
  Transmission Date: 20210717
  Serious: Yes (Other)
  Sender: FDA-Public Use
  Company Number: US-CHIESI-2021CHF02554

PATIENT
  Age: 67 Year

DRUGS (1)
  1. CANGRELOR TETRASODIUM. [Suspect]
     Active Substance: CANGRELOR TETRASODIUM
     Indication: PERCUTANEOUS CORONARY INTERVENTION
     Dosage: UNK, (1X)
     Route: 042

REACTIONS (3)
  - Infusion site extravasation [Recovered/Resolved]
  - Infusion site haematoma [Recovered/Resolved]
  - Motor dysfunction [Recovered/Resolved]
